FAERS Safety Report 14004550 (Version 1)
Quarter: 2017Q3

REPORT INFORMATION
  Report Type: Spontaneous
  Country: US (occurrence: US)
  Receive Date: 20170922
  Receipt Date: 20170922
  Transmission Date: 20171128
  Serious: No
  Sender: FDA-Public Use
  Company Number: US-CIPLA LTD.-2017US15425

PATIENT

DRUGS (2)
  1. BUPROPION HYDROCHLORIDE XL [Suspect]
     Active Substance: BUPROPION HYDROCHLORIDE
     Dosage: UNK, CIPLA
     Route: 065
  2. BUPROPION HYDROCHLORIDE XL [Suspect]
     Active Substance: BUPROPION HYDROCHLORIDE
     Dosage: UNK, UNKNOWN MANUFACTURER
     Route: 065

REACTIONS (8)
  - Hyperphagia [Unknown]
  - Asthenia [Unknown]
  - Somnolence [Unknown]
  - Product substitution issue [Unknown]
  - Depression [Unknown]
  - Depressed mood [Unknown]
  - Drug ineffective [Unknown]
  - Disturbance in attention [Unknown]
